FAERS Safety Report 7261896-1 (Version None)
Quarter: 2011Q1

REPORT INFORMATION
  Report Type: 
  Country: None (occurrence: None)
  Receive Date: 20110130
  Receipt Date: 20101213
  Transmission Date: 20110831
  Serious: No
  Sender: FDA-Public Use
  Company Number: US-ABBOTT-10P-163-0691013-00

PATIENT
  Sex: Female
  Weight: 29.51 kg

DRUGS (4)
  1. METHOTREX [Concomitant]
     Indication: PRODUCT USED FOR UNKNOWN INDICATION
     Route: 048
  2. LIDOCAINE HYDROCHLORIDE IN PLASTIC CONTAINER [Concomitant]
     Indication: INJECTION SITE PAIN
     Dosage: MIXED WITH HUMIRA, EVERY 2 WEEKS
  3. FOLIC ACID [Concomitant]
     Indication: PRODUCT USED FOR UNKNOWN INDICATION
  4. HUMIRA [Suspect]
     Indication: JUVENILE ARTHRITIS
     Route: 058

REACTIONS (2)
  - WRONG TECHNIQUE IN DRUG USAGE PROCESS [None]
  - INJECTION SITE PAIN [None]
